FAERS Safety Report 5347500-8 (Version None)
Quarter: 2007Q2

REPORT INFORMATION
  Report Type: 
  Country: None (occurrence: None)
  Receive Date: 20070604
  Receipt Date: 20070604
  Transmission Date: 20071010
  Serious: Yes (Hospitalization)
  Sender: FDA-Public Use
  Company Number: None

PATIENT
  Sex: Female
  Weight: 93 kg

DRUGS (9)
  1. CARBOPLATIN [Suspect]
     Dosage: 735 MG
     Dates: end: 20070529
  2. TAXOL [Suspect]
     Dosage: 350 MG
     Dates: end: 20070529
  3. COLACE [Concomitant]
  4. COUMADIN [Concomitant]
  5. HYDROCHLOROTHIAZIDE [Concomitant]
  6. NEXIUM [Concomitant]
  7. QUINAPRIL [Concomitant]
  8. SENOKOT [Concomitant]
  9. ZYPREXA [Concomitant]

REACTIONS (6)
  - CATHETER RELATED INFECTION [None]
  - CHILLS [None]
  - INFECTION [None]
  - PYREXIA [None]
  - STAPHYLOCOCCAL INFECTION [None]
  - WOUND DRAINAGE [None]
